FAERS Safety Report 8101768-3 (Version None)
Quarter: 2012Q1

REPORT INFORMATION
  Report Type: 
  Country: None (occurrence: None)
  Receive Date: 20120131
  Receipt Date: 20120119
  Transmission Date: 20120608
  Serious: Yes (Other)
  Sender: FDA-Public Use
  Company Number: PHEH2011US011302

PATIENT
  Sex: Male

DRUGS (5)
  1. ACETYLSALICYLIC ACID SRT [Concomitant]
     Dosage: 1 DF, (81MG) DAILY
  2. LEVEMIR [Concomitant]
     Indication: BLOOD INSULIN
     Dosage: 42 U, AT NIGHT
  3. NOVOLOG [Concomitant]
     Indication: BLOOD INSULIN
  4. ACTOPLUS MET [Concomitant]
     Dosage: 1 DF (850/15 MG), UNK
     Dates: start: 20050101
  5. DIOVAN HCT [Suspect]
     Dosage: 1 DF (152/25MG) ONCE DAILY
     Dates: start: 20100702

REACTIONS (2)
  - GAIT DISTURBANCE [None]
  - TRANSIENT ISCHAEMIC ATTACK [None]
